FAERS Safety Report 20199571 (Version 1)
Quarter: 2021Q4

REPORT INFORMATION
  Report Type: Spontaneous
  Country: US (occurrence: US)
  Receive Date: 20211217
  Receipt Date: 20211217
  Transmission Date: 20220303
  Serious: No
  Sender: FDA-Public Use
  Company Number: US-BAUSCH-BL-2021-041072

PATIENT
  Age: 76 Year
  Sex: Female

DRUGS (2)
  1. XIFAXAN [Suspect]
     Active Substance: RIFAXIMIN
     Indication: Gastrointestinal bacterial overgrowth
     Route: 048
     Dates: start: 202006, end: 2020
  2. XIFAXAN [Suspect]
     Active Substance: RIFAXIMIN
     Dosage: SECOND COURSE
     Route: 048

REACTIONS (3)
  - Gastrointestinal bacterial overgrowth [Not Recovered/Not Resolved]
  - Disease recurrence [Not Recovered/Not Resolved]
  - Product expiration date issue [Unknown]
